FAERS Safety Report 23101500 (Version 1)
Quarter: 2023Q4

REPORT INFORMATION
  Report Type: Report from Study
  Country: CA (occurrence: CA)
  Receive Date: 20231024
  Receipt Date: 20231024
  Transmission Date: 20240110
  Serious: Yes (Hospitalization, Other)
  Sender: FDA-Public Use
  Company Number: CA-BIOGEN-2023BI01232589

PATIENT
  Age: 59 Year
  Sex: Female

DRUGS (1)
  1. DALFAMPRIDINE [Suspect]
     Active Substance: DALFAMPRIDINE
     Indication: Multiple sclerosis
     Route: 050
     Dates: start: 20211009

REACTIONS (2)
  - Cerebrovascular accident [Unknown]
  - Moyamoya disease [Not Recovered/Not Resolved]

NARRATIVE: CASE EVENT DATE: 20230716
